FAERS Safety Report 9406022 (Version 1)
Quarter: 2013Q3

REPORT INFORMATION
  Report Type: Spontaneous
  Country: US (occurrence: US)
  Receive Date: 20130717
  Receipt Date: 20130717
  Transmission Date: 20140515
  Serious: No
  Sender: FDA-Public Use
  Company Number: US-009507513-1306USA012860

PATIENT
  Sex: 0

DRUGS (3)
  1. JANUVIA [Suspect]
     Route: 048
  2. VICTOZA [Suspect]
     Dosage: 0.6 MG, UNK
  3. VICTOZA [Suspect]
     Dosage: 1.2 MG, UNK

REACTIONS (1)
  - Blood glucose increased [Unknown]
